FAERS Safety Report 5904115-8 (Version None)
Quarter: 2008Q3

REPORT INFORMATION
  Report Type: 
  Country: None (occurrence: None)
  Receive Date: 20080919
  Receipt Date: 20080626
  Transmission Date: 20090109
  Serious: Yes (Other)
  Sender: FDA-Public Use
  Company Number: US-WYE-H04754808

PATIENT
  Age: 53 Year
  Sex: Male
  Weight: 95.79 kg

DRUGS (11)
  1. PRISTIQ [Suspect]
     Dosage: TOOK 50 MG AT HS THEN 50 MG IN THE MORNING, ORAL
     Route: 048
     Dates: start: 20080618, end: 20080619
  2. LIPITOR [Concomitant]
  3. LOTREL [Concomitant]
  4. NEXIUM [Concomitant]
  5. AVODART [Concomitant]
  6. UROXATRAL [Concomitant]
  7. WELCHOL [Concomitant]
  8. ADVAIR DISKUS 100/50 [Concomitant]
  9. CIALIS [Concomitant]
  10. SPIRIVA [Concomitant]
  11. ALLEGRA [Concomitant]

REACTIONS (3)
  - FEELING ABNORMAL [None]
  - INAPPROPRIATE SCHEDULE OF DRUG ADMINISTRATION [None]
  - SEDATION [None]
